FAERS Safety Report 17510827 (Version 5)
Quarter: 2022Q1

REPORT INFORMATION
  Report Type: Spontaneous
  Country: FR (occurrence: FR)
  Receive Date: 20200306
  Receipt Date: 20220304
  Transmission Date: 20220423
  Serious: Yes (Hospitalization, Other)
  Sender: FDA-Public Use
  Company Number: FR-MLMSERVICE-20191206-2073352-1

PATIENT
  Age: 58 Year
  Sex: Male

DRUGS (1)
  1. DOXYCYCLINE [Suspect]
     Active Substance: DOXYCYCLINE
     Indication: Chlamydial infection
     Dosage: UNK,1 SINGLE TAKE
     Route: 048
     Dates: start: 20181015, end: 20181015

REACTIONS (5)
  - Fixed eruption [Recovering/Resolving]
  - Symmetrical drug-related intertriginous and flexural exanthema [Recovered/Resolved]
  - Rash [Recovering/Resolving]
  - Burning sensation [Recovering/Resolving]
  - Oedema [Recovering/Resolving]

NARRATIVE: CASE EVENT DATE: 20181015
